FAERS Safety Report 8924442 (Version 1)
Quarter: 2012Q4

REPORT INFORMATION
  Report Type: Spontaneous
  Country: US (occurrence: None)
  Receive Date: 20121121
  Receipt Date: 20121121
  Transmission Date: 20130627
  Serious: Yes (Hospitalization)
  Sender: FDA-Public Use
  Company Number: None

PATIENT
  Age: 72 Year
  Sex: Female
  Weight: 54.8 kg

DRUGS (10)
  1. ERLOTINIB 100MG OSI PHARMACEUTICALS [Suspect]
     Indication: NON-SMALL CELL LUNG CANCER
     Dosage: 100mg Daily Po
     Route: 048
     Dates: start: 200705, end: 201211
  2. FOOD SUPPLEMENT, LACTOSE-FREE LIQD [Concomitant]
  3. DICYCLOMINE (BENTYL) [Concomitant]
  4. PEG 3350-ELECTROLYTES (GOLYTELY) [Concomitant]
  5. MAG CARB/AL HYDROX/ALGINIC AC (GAVISCON ORAL) [Concomitant]
  6. SODIUM CHLORIDE (SALINE NASAL) [Concomitant]
  7. HYDROCODONE-ACETAMINOPHEN (VICODIN) [Concomitant]
  8. LORAZEPAM (ATIVAN) [Concomitant]
  9. ZOLPIDEM (AMBIEN CR) [Concomitant]
  10. OMEPRAZOLE [Concomitant]

REACTIONS (6)
  - Weight decreased [None]
  - Abdominal discomfort [None]
  - Abdominal distension [None]
  - Diarrhoea [None]
  - Constipation [None]
  - Flatulence [None]
